FAERS Safety Report 9562193 (Version 4)
Quarter: 2014Q3

REPORT INFORMATION
  Report Type: Report from Study
  Country: FR (occurrence: FR)
  Receive Date: 20130927
  Receipt Date: 20140916
  Transmission Date: 20150326
  Serious: Yes (Hospitalization, Other)
  Sender: FDA-Public Use
  Company Number: PHHY2013FR106507

PATIENT
  Age: 64 Year
  Weight: 56 kg

DRUGS (5)
  1. LERCAN [Concomitant]
     Active Substance: LERCANIDIPINE
     Indication: HYPERTENSION
     Dosage: 10 MG, QD
     Dates: start: 20110506
  2. FLECAINE [Concomitant]
     Active Substance: FLECAINIDE
     Dosage: 100 MG, QD
     Dates: start: 20130917
  3. TASIGNA [Suspect]
     Active Substance: NILOTINIB
     Indication: CHRONIC MYELOID LEUKAEMIA
     Dosage: 400 MG, BID
     Route: 048
     Dates: start: 20111118, end: 20130915
  4. TASIGNA [Suspect]
     Active Substance: NILOTINIB
     Dosage: 400 MG, BID
     Route: 048
     Dates: start: 20130916
  5. FLECAINE [Concomitant]
     Active Substance: FLECAINIDE
     Indication: CARDIAC DISORDER
     Dosage: 100 MG, QD
     Dates: start: 201303, end: 20130915

REACTIONS (7)
  - Atrioventricular block [Not Recovered/Not Resolved]
  - Loss of consciousness [Recovered/Resolved]
  - Vomiting [Recovered/Resolved]
  - Malaise [Recovered/Resolved]
  - Electrocardiogram QT prolonged [Not Recovered/Not Resolved]
  - Bundle branch block left [Not Recovered/Not Resolved]
  - Bundle branch block right [Not Recovered/Not Resolved]

NARRATIVE: CASE EVENT DATE: 20130915
